FAERS Safety Report 21346187 (Version 2)
Quarter: 2022Q4

REPORT INFORMATION
  Report Type: Report from Study
  Country: MX (occurrence: MX)
  Receive Date: 20220917
  Receipt Date: 20221003
  Transmission Date: 20230113
  Serious: Yes (Other)
  Sender: FDA-Public Use
  Company Number: MX-NOVARTISPH-NVSC2022MX209246

PATIENT
  Age: 64 Year
  Sex: Female
  Weight: 79 kg

DRUGS (3)
  1. HYDROCHLOROTHIAZIDE\VALSARTAN [Suspect]
     Active Substance: HYDROCHLOROTHIAZIDE\VALSARTAN
     Indication: Hypertension
     Dosage: 1 DOSAGE FORM, QD, (160/12.5 MG), (BY MOUTH), (STARTED ABOUT 7 OR 8 YEARS AGO)
     Route: 048
     Dates: end: 202201
  2. HYDROCHLOROTHIAZIDE\VALSARTAN [Suspect]
     Active Substance: HYDROCHLOROTHIAZIDE\VALSARTAN
     Dosage: 1 DOSAGE FORM, QD, (80/12.5 MG), (BY MOUTH)
     Route: 048
     Dates: start: 202201
  3. HYDROCHLOROTHIAZIDE\VALSARTAN [Suspect]
     Active Substance: HYDROCHLOROTHIAZIDE\VALSARTAN
     Dosage: 0.5 DOSAGE FORM, QD (160/12.5 MG), (BY MOUTH)
     Route: 048

REACTIONS (11)
  - Diabetes mellitus [Unknown]
  - Joint swelling [Recovered/Resolved]
  - Phlebitis [Recovered/Resolved]
  - Dizziness [Unknown]
  - Blood pressure abnormal [Unknown]
  - Blood glucose abnormal [Unknown]
  - Peripheral swelling [Unknown]
  - Suspected COVID-19 [Unknown]
  - Varicophlebitis [Recovered/Resolved]
  - Hypotension [Recovered/Resolved]
  - Off label use [Unknown]

NARRATIVE: CASE EVENT DATE: 20220101
